FAERS Safety Report 16631157 (Version 3)
Quarter: 2019Q4

REPORT INFORMATION
  Report Type: Report from Study
  Country: US (occurrence: US)
  Receive Date: 20190725
  Receipt Date: 20191001
  Transmission Date: 20200122
  Serious: Yes (Life-Threatening, Hospitalization)
  Sender: FDA-Public Use
  Company Number: US-009507513-1907USA011898

PATIENT
  Age: 26 Year
  Sex: Female
  Weight: 91.61 kg

DRUGS (1)
  1. IMPLANON [Suspect]
     Active Substance: ETONOGESTREL
     Indication: CONTRACEPTION
     Dosage: 1 ROD EVERY THREE YEARS
     Route: 059
     Dates: start: 20190402, end: 20190417

REACTIONS (5)
  - Implant site infection [Recovered/Resolved]
  - Surgery [Recovered/Resolved]
  - General anaesthesia [Recovered/Resolved]
  - Complication of device removal [Recovered/Resolved]
  - Localised infection [Recovered/Resolved]

NARRATIVE: CASE EVENT DATE: 201904
